FAERS Safety Report 9100509 (Version 1)
Quarter: 2013Q1

REPORT INFORMATION
  Report Type: Spontaneous
  Country: US (occurrence: US)
  Receive Date: 20130215
  Receipt Date: 20130215
  Transmission Date: 20140127
  Serious: Yes (Other)
  Sender: FDA-Public Use
  Company Number: PHEH2013US003676

PATIENT
  Age: 32 Year
  Sex: Male

DRUGS (1)
  1. ZORTRESS [Suspect]

REACTIONS (2)
  - Renal tubular necrosis [Unknown]
  - Graft dysfunction [Unknown]
